FAERS Safety Report 8017012-1 (Version None)
Quarter: 2012Q1

REPORT INFORMATION
  Report Type: 
  Country: None (occurrence: None)
  Receive Date: 20120102
  Receipt Date: 20111228
  Transmission Date: 20120608
  Serious: Yes (Hospitalization)
  Sender: FDA-Public Use
  Company Number: PHHY2010US76001

PATIENT
  Sex: Female

DRUGS (2)
  1. DESFERAL [Suspect]
     Route: 042
  2. EXJADE [Suspect]
     Indication: IRON OVERLOAD
     Dosage: 1000 MG, QD
     Route: 048
     Dates: start: 20060801

REACTIONS (5)
  - NAUSEA [None]
  - PAIN [None]
  - BACK PAIN [None]
  - VOMITING [None]
  - DIARRHOEA [None]
